FAERS Safety Report 18493900 (Version 1)
Quarter: 2020Q4

REPORT INFORMATION
  Report Type: Report from Study
  Country: None (occurrence: AR)
  Receive Date: 20201111
  Receipt Date: 20201111
  Transmission Date: 20210114
  Serious: Yes (Other)
  Sender: FDA-Public Use
  Company Number: AR-ABBVIE-20K-007-3588495-00

PATIENT
  Sex: Female

DRUGS (1)
  1. HUMIRA [Suspect]
     Active Substance: ADALIMUMAB
     Indication: RHEUMATOID ARTHRITIS
     Route: 058
     Dates: start: 20191221

REACTIONS (5)
  - Joint range of motion decreased [Unknown]
  - Arthralgia [Recovered/Resolved]
  - Tendon discomfort [Recovered/Resolved]
  - Arthritis [Unknown]
  - Pain in extremity [Recovered/Resolved]
